FAERS Safety Report 22390502 (Version 2)
Quarter: 2023Q2

REPORT INFORMATION
  Report Type: Spontaneous
  Country: GR (occurrence: GR)
  Receive Date: 20230531
  Receipt Date: 20230621
  Transmission Date: 20230721
  Serious: Yes (Disabling, Other)
  Sender: FDA-Public Use
  Company Number: GR-MYLANLABS-2023M1056051

PATIENT
  Age: 70 Year
  Sex: Female

DRUGS (3)
  1. XANAX [Suspect]
     Active Substance: ALPRAZOLAM
     Indication: Anxiolytic therapy
     Dosage: UNK
     Route: 065
  2. XANAX [Suspect]
     Active Substance: ALPRAZOLAM
     Indication: Essential hypertension
     Dosage: 3 MILLIGRAM, QD
     Route: 065
  3. XANAX [Suspect]
     Active Substance: ALPRAZOLAM
     Dosage: 0.25 MILLIGRAM
     Route: 065

REACTIONS (10)
  - Asthenia [Recovered/Resolved]
  - Withdrawal syndrome [Recovering/Resolving]
  - Dependence [Recovering/Resolving]
  - Essential hypertension [Recovered/Resolved]
  - Feeling abnormal [Recovering/Resolving]
  - Insomnia [Recovering/Resolving]
  - Constipation [Recovered/Resolved]
  - Off label use [Unknown]
  - Product use issue [Unknown]
  - Incorrect product administration duration [Unknown]
